FAERS Safety Report 5941205-8 (Version None)
Quarter: 2008Q4

REPORT INFORMATION
  Report Type: 
  Country: None (occurrence: None)
  Receive Date: 20081104
  Receipt Date: 20081024
  Transmission Date: 20090506
  Serious: Yes (Hospitalization)
  Sender: FDA-Public Use
  Company Number: SG-PFIZER INC-2006078419

PATIENT
  Sex: Male

DRUGS (8)
  1. SU-011,248 [Suspect]
     Indication: GASTROINTESTINAL STROMAL TUMOUR
     Route: 048
     Dates: start: 20060519, end: 20060601
  2. AMLODIPINE [Concomitant]
     Route: 048
     Dates: start: 19980101
  3. MEGACE [Concomitant]
     Route: 048
     Dates: start: 20060515
  4. VASTAREL [Concomitant]
     Route: 048
     Dates: start: 20020101
  5. HYOSIN COMP [Concomitant]
     Route: 048
     Dates: start: 20060101
  6. MAXOLON [Concomitant]
     Route: 048
     Dates: start: 20060515
  7. VITAMIN CAP [Concomitant]
     Route: 048
     Dates: start: 20060515
  8. BISOPROLOL FUMARATE [Concomitant]
     Route: 048
     Dates: start: 20020101

REACTIONS (1)
  - LETHARGY [None]
